FAERS Safety Report 4688353-0 (Version None)
Quarter: 2005Q2

REPORT INFORMATION
  Report Type: 
  Country: None (occurrence: None)
  Receive Date: 20050609
  Receipt Date: 20050603
  Transmission Date: 20051028
  Serious: Yes (Death)
  Sender: FDA-Public Use
  Company Number: 11343

PATIENT
  Age: 44 Year
  Sex: Female

DRUGS (3)
  1. FLUOROURACIL [Suspect]
  2. IRINOTECAN [Suspect]
  3. LEUCOVORIN [Suspect]

REACTIONS (4)
  - GASTROINTESTINAL TOXICITY [None]
  - GENE MUTATION IDENTIFICATION TEST POSITIVE [None]
  - GENERAL PHYSICAL HEALTH DETERIORATION [None]
  - HAEMATOTOXICITY [None]
